FAERS Safety Report 5958143-7 (Version None)
Quarter: 2008Q4

REPORT INFORMATION
  Report Type: 
  Country: None (occurrence: None)
  Receive Date: 20081117
  Receipt Date: 20081117
  Transmission Date: 20090506
  Serious: Yes (Hospitalization)
  Sender: FDA-Public Use
  Company Number: None

PATIENT
  Sex: Male
  Weight: 69.9 kg

DRUGS (2)
  1. RAPAMYCIN [Suspect]
     Indication: COLON CANCER METASTATIC
     Dosage: 35 MG Q WEEK PO
     Route: 048
     Dates: start: 20081008, end: 20081105
  2. GRAPEFRUIT JUICE [Suspect]
     Indication: COLON CANCER METASTATIC
     Dosage: 8 OZ DAILY PO
     Route: 046
     Dates: start: 20081014, end: 20081110

REACTIONS (6)
  - BRONCHITIS [None]
  - CANDIDIASIS [None]
  - HERPES SIMPLEX [None]
  - HYPOPHAGIA [None]
  - MOUTH ULCERATION [None]
  - VIRAL PHARYNGITIS [None]
